FAERS Safety Report 16027791 (Version 6)
Quarter: 2019Q2

REPORT INFORMATION
  Report Type: Report from Study
  Country: US (occurrence: US)
  Receive Date: 20190304
  Receipt Date: 20190524
  Transmission Date: 20190711
  Serious: No
  Sender: FDA-Public Use
  Company Number: PHEH2019US008842

PATIENT
  Sex: Male

DRUGS (4)
  1. COSENTYX [Suspect]
     Active Substance: SECUKINUMAB
     Indication: PSORIATIC ARTHROPATHY
     Dosage: 150 MG, QW (AT WEEK 0, 1, 2, 3, AND 4 AND THEN Q4W)
     Route: 058
     Dates: start: 20190205
  2. COSENTYX [Suspect]
     Active Substance: SECUKINUMAB
     Dosage: 150 MG, QW (AT WEEK 0, 1, 2, 3, AND 4 AND THEN Q4W)
     Route: 058
     Dates: start: 20190219
  3. COSENTYX [Suspect]
     Active Substance: SECUKINUMAB
     Dosage: 150 MG, QW (AT WEEK 0, 1, 2, 3, AND 4 AND THEN Q4W)
     Route: 058
     Dates: start: 20190212
  4. COSENTYX [Suspect]
     Active Substance: SECUKINUMAB
     Dosage: 150 MG, Q4W
     Route: 058

REACTIONS (9)
  - Feeling abnormal [Recovering/Resolving]
  - Abdominal discomfort [Unknown]
  - Therapeutic product effect incomplete [Not Recovered/Not Resolved]
  - Fatigue [Recovering/Resolving]
  - Arthralgia [Not Recovered/Not Resolved]
  - Decreased appetite [Unknown]
  - Asthenia [Recovering/Resolving]
  - Essential tremor [Unknown]
  - Psoriasis [Not Recovered/Not Resolved]
